FAERS Safety Report 8822126 (Version 1)
Quarter: 2012Q4

REPORT INFORMATION
  Report Type: Report from Study
  Country: JP (occurrence: JP)
  Receive Date: 20121003
  Receipt Date: 20121003
  Transmission Date: 20130627
  Serious: Yes (Other)
  Sender: FDA-Public Use
  Company Number: JP-009507513-1208JPN009740

PATIENT

DRUGS (3)
  1. PEGINTRON [Suspect]
     Indication: HEPATITIS C
     Dosage: 100 Microgram per kilogram, qw
     Route: 058
     Dates: start: 20120612
  2. REBETOL [Suspect]
     Indication: HEPATITIS C
     Dosage: 400 mg, qd
     Route: 048
     Dates: start: 20120612
  3. TELAVIC [Suspect]
     Indication: HEPATITIS C
     Dosage: 1500 mg, qd
     Route: 048
     Dates: start: 20120612

REACTIONS (1)
  - Neutropenia [Unknown]
